FAERS Safety Report 8286532-7 (Version None)
Quarter: 2012Q2

REPORT INFORMATION
  Report Type: 
  Country: None (occurrence: None)
  Receive Date: 20120416
  Receipt Date: 20120409
  Transmission Date: 20120825
  Serious: Yes (Other)
  Sender: FDA-Public Use
  Company Number: US-PFIZER INC-2012088487

PATIENT
  Sex: Female
  Weight: 72.562 kg

DRUGS (5)
  1. OMEPRAZOLE [Concomitant]
     Indication: GASTROOESOPHAGEAL REFLUX DISEASE
     Dosage: UNK
  2. LATANOPROST [Suspect]
     Indication: GLAUCOMA
     Dosage: ONE DROP IN BOTH EYES, 1X/DAY
     Route: 047
  3. ATENOLOL [Concomitant]
     Indication: HYPERTENSION
     Dosage: UNK
  4. TRIAMTERENE [Concomitant]
     Indication: HYPERTENSION
     Dosage: UNK
  5. METFORMIN [Concomitant]
     Indication: DIABETES MELLITUS
     Dosage: UNK

REACTIONS (6)
  - SKIN EXFOLIATION [None]
  - BLISTER [None]
  - OROPHARYNGEAL BLISTERING [None]
  - URINARY TRACT INFECTION [None]
  - PRURITUS [None]
  - ORAL MUCOSAL EXFOLIATION [None]
